FAERS Safety Report 10602611 (Version 1)
Quarter: 2014Q4

REPORT INFORMATION
  Report Type: Spontaneous
  Country: NL (occurrence: NL)
  Receive Date: 20141124
  Receipt Date: 20141124
  Transmission Date: 20150529
  Serious: Yes (Life-Threatening, Hospitalization, Other)
  Sender: FDA-Public Use
  Company Number: NL-TEVA-524108ISR

PATIENT
  Age: 76 Year
  Sex: Male
  Weight: 83 kg

DRUGS (3)
  1. FOLIC ACID. [Suspect]
     Active Substance: FOLIC ACID
     Dosage: 1 DOSAGE FORMS DAILY;
     Route: 048
     Dates: start: 20140626, end: 20140809
  2. EFUDIX CREME 50 MG/G [Suspect]
     Active Substance: FLUOROURACIL
     Dosage: APPLY ON SKIN OF HEAD
     Route: 003
     Dates: start: 20140726, end: 20140809
  3. BONUSAN CO-ENZYM B12 BON 1500 MCG TB [Suspect]
     Active Substance: COBAMAMIDE
     Dosage: 1 DOSAGE FORMS DAILY;
     Route: 048
     Dates: start: 20140626, end: 20140809

REACTIONS (1)
  - Myocardial infarction [Recovered/Resolved]

NARRATIVE: CASE EVENT DATE: 20140803
